FAERS Safety Report 12426056 (Version 1)
Quarter: 2016Q2

REPORT INFORMATION
  Report Type: Spontaneous
  Country: NO (occurrence: NO)
  Receive Date: 20160601
  Receipt Date: 20160601
  Transmission Date: 20160815
  Serious: Yes (Other)
  Sender: FDA-Public Use
  Company Number: NO-SA-2016SA101233

PATIENT
  Age: 59 Year
  Sex: Male

DRUGS (1)
  1. PLAVIX [Suspect]
     Active Substance: CLOPIDOGREL BISULFATE
     Indication: HEART TRANSPLANT
     Route: 048
     Dates: end: 201512

REACTIONS (2)
  - Polyarthritis [Recovering/Resolving]
  - Polymyalgia rheumatica [Recovered/Resolved]
